FAERS Safety Report 8349095-3 (Version None)
Quarter: 2012Q2

REPORT INFORMATION
  Report Type: 
  Country: None (occurrence: None)
  Receive Date: 20120508
  Receipt Date: 20120424
  Transmission Date: 20120825
  Serious: Yes (Other)
  Sender: FDA-Public Use
  Company Number: AUR-APL-2012-01991

PATIENT
  Sex: 0

DRUGS (5)
  1. DIDANOSINE [Suspect]
     Indication: HIV INFECTION
  2. ZIDOVUDINE [Suspect]
     Indication: HIV INFECTION
  3. INDINIVIR SULFATE [Suspect]
     Indication: HIV INFECTION
  4. NELFINAVIR MESYLATE [Suspect]
     Indication: HIV INFECTION
  5. STAVUDINE [Suspect]
     Indication: HIV INFECTION

REACTIONS (1)
  - DIABETES MELLITUS [None]
